FAERS Safety Report 20121413 (Version 1)
Quarter: 2021Q4

REPORT INFORMATION
  Report Type: Spontaneous
  Country: US (occurrence: None)
  Receive Date: 20211125
  Receipt Date: 20211125
  Transmission Date: 20220304
  Serious: Yes (Hospitalization)
  Sender: FDA-Public Use
  Company Number: None

PATIENT
  Age: 35 Year
  Sex: Female
  Weight: 72.7 kg

DRUGS (3)
  1. METHOTREXATE [Suspect]
     Active Substance: METHOTREXATE
     Dates: start: 20210407, end: 20211104
  2. ONCASPAR [Suspect]
     Active Substance: PEGASPARGASE
     Dosage: OTHER STRENGTH : 7156 UNIT;?
     Dates: start: 20210404, end: 20211026
  3. VINCRISTINE SULFATE [Suspect]
     Active Substance: VINCRISTINE SULFATE
     Dates: start: 20210407, end: 20211104

REACTIONS (16)
  - Abdominal distension [None]
  - Loss of personal independence in daily activities [None]
  - Abdominal distension [None]
  - Peripheral swelling [None]
  - Breath sounds abnormal [None]
  - Gastrointestinal sounds abnormal [None]
  - Oedema peripheral [None]
  - Gastrointestinal inflammation [None]
  - Neutropenic colitis [None]
  - Colitis [None]
  - Infection [None]
  - Ascites [None]
  - Pleural effusion [None]
  - Cough [None]
  - Gastrointestinal wall thickening [None]
  - Peritonitis [None]

NARRATIVE: CASE EVENT DATE: 20211117
